FAERS Safety Report 5202020-6 (Version None)
Quarter: 2007Q1

REPORT INFORMATION
  Report Type: 
  Country: None (occurrence: None)
  Receive Date: 20070109
  Receipt Date: 20061228
  Transmission Date: 20070707
  Serious: Yes (Other)
  Sender: FDA-Public Use
  Company Number: FR-JNJFOC-20061105316

PATIENT
  Sex: Female
  Weight: 46 kg

DRUGS (7)
  1. RISPERDAL CONSTA [Suspect]
     Indication: PSYCHOTIC DISORDER
     Route: 030
  2. RISPERDAL [Suspect]
     Indication: PSYCHOTIC DISORDER
     Route: 048
  3. TERCIAN [Suspect]
     Indication: PSYCHOTIC DISORDER
     Route: 048
  4. IMOVANE [Concomitant]
     Indication: INSOMNIA
  5. HEPT-A-MYL [Concomitant]
     Indication: HYPOTENSION
  6. LORAZEPAM [Concomitant]
     Indication: ANXIETY
  7. PAROXETINE HCL [Concomitant]
     Indication: DEPRESSION

REACTIONS (2)
  - ELECTROCARDIOGRAM QT PROLONGED [None]
  - TACHYCARDIA [None]
